FAERS Safety Report 9580415 (Version 1)
Quarter: 2013Q3

REPORT INFORMATION
  Report Type: Spontaneous
  Country: US (occurrence: None)
  Receive Date: 20130916
  Receipt Date: 20130916
  Transmission Date: 20140515
  Serious: Yes (Other)
  Sender: FDA-Public Use
  Company Number: JPI-P-032178

PATIENT
  Age: 32 Year
  Sex: Female
  Weight: 54.43 kg

DRUGS (6)
  1. XYREM [Suspect]
     Indication: NARCOLEPSY
     Dosage: 4.5 GM (2.25 GM, 2 IN 1 D)
     Route: 048
     Dates: start: 20130427, end: 20130505
  2. XYREM [Suspect]
     Indication: SOMNOLENCE
     Dosage: 4.5 GM (2.25 GM, 2 IN 1 D)
     Route: 048
     Dates: start: 20130427, end: 20130505
  3. DEXTROAMPHETAMINE [Concomitant]
  4. MULTIVITAMIN [Concomitant]
  5. CYCLOBENZAPRINE [Concomitant]
  6. IBUPROFEN [Concomitant]

REACTIONS (13)
  - Depression [None]
  - Condition aggravated [None]
  - Oral pain [None]
  - Pain in jaw [None]
  - Crying [None]
  - Sensory disturbance [None]
  - Hyperhidrosis [None]
  - Dizziness [None]
  - Dyspnoea [None]
  - Nausea [None]
  - Decreased appetite [None]
  - Weight decreased [None]
  - Somnolence [None]
